FAERS Safety Report 9914540 (Version 2)
Quarter: 2014Q1

REPORT INFORMATION
  Report Type: Report from Study
  Country: US (occurrence: US)
  Receive Date: 20140220
  Receipt Date: 20140220
  Transmission Date: 20141002
  Serious: Yes (Other)
  Sender: FDA-Public Use
  Company Number: US-BAYER-2013-103524

PATIENT
  Age: 65 Year
  Sex: Female

DRUGS (4)
  1. NEXAVAR [Suspect]
     Indication: COLON CANCER
     Dosage: 2 X 200 MG
     Route: 048
     Dates: start: 20130723
  2. NEXAVAR [Suspect]
     Indication: COLON CANCER
     Dosage: 200 MG, QD
     Route: 048
     Dates: start: 20130808, end: 20131104
  3. NEXAVAR [Suspect]
     Indication: COLON CANCER
     Dosage: 200 MG, QD
     Route: 048
     Dates: start: 2013, end: 2013
  4. AVASTIN [Concomitant]

REACTIONS (12)
  - Bone contusion [Not Recovered/Not Resolved]
  - Sinusitis [Recovered/Resolved]
  - Neck pain [Not Recovered/Not Resolved]
  - Pain in extremity [Not Recovered/Not Resolved]
  - Off label use [None]
  - Hypersensitivity [None]
  - Sinusitis [Recovered/Resolved]
  - Dehydration [Not Recovered/Not Resolved]
  - Diarrhoea [Not Recovered/Not Resolved]
  - Flatulence [Not Recovered/Not Resolved]
  - Pain of skin [Not Recovered/Not Resolved]
  - Anal fissure [None]
